FAERS Safety Report 7502174-2 (Version None)
Quarter: 2011Q2

REPORT INFORMATION
  Report Type: 
  Country: None (occurrence: None)
  Receive Date: 20110523
  Receipt Date: 20110523
  Transmission Date: 20111010
  Serious: Yes (Life-Threatening, Hospitalization)
  Sender: FDA-Public Use
  Company Number: None

PATIENT
  Age: 44 Year
  Sex: Male
  Weight: 60.5 kg

DRUGS (1)
  1. METHADONE HCL [Suspect]
     Dosage: 30 MG TID PO
     Route: 048
     Dates: start: 20020311, end: 20110323

REACTIONS (3)
  - RESPIRATORY ARREST [None]
  - APNOEA [None]
  - HYPOXIA [None]
